FAERS Safety Report 19768273 (Version 1)
Quarter: 2021Q3

REPORT INFORMATION
  Report Type: Report from Study
  Country: DE (occurrence: DE)
  Receive Date: 20210830
  Receipt Date: 20210830
  Transmission Date: 20211014
  Serious: Yes (Hospitalization, Other)
  Sender: FDA-Public Use
  Company Number: DE-SHIRE-DE202010224

PATIENT
  Age: 51 Year
  Sex: Female

DRUGS (3)
  1. HUMAN IMMUNOGLOBULIN; HYALURONIDASE [Suspect]
     Active Substance: HUMAN IMMUNOGLOBULIN G\HYALURONIDASE RECOMBINANT HUMAN
     Dosage: 20 GRAM, Q3WEEKS
     Route: 058
     Dates: start: 20200508
  2. LEVOTHYROXIN [Concomitant]
     Active Substance: LEVOTHYROXINE
     Indication: AUTOIMMUNE THYROIDITIS
     Dosage: 1 DOSAGE FORM, 1X/DAY:QD
     Route: 048
     Dates: start: 20150316
  3. HUMAN IMMUNOGLOBULIN; HYALURONIDASE [Suspect]
     Active Substance: HUMAN IMMUNOGLOBULIN G\HYALURONIDASE RECOMBINANT HUMAN
     Indication: PRIMARY IMMUNODEFICIENCY SYNDROME
     Dosage: 20 GRAM, EVERY 4 WK
     Route: 058
     Dates: start: 20200314, end: 20200314

REACTIONS (4)
  - Dysuria [Recovered/Resolved]
  - Benign abdominal neoplasm [Recovering/Resolving]
  - Pyrexia [Recovered/Resolved]
  - Nasopharyngitis [Recovered/Resolved]

NARRATIVE: CASE EVENT DATE: 20200314
